FAERS Safety Report 18367559 (Version 1)
Quarter: 2020Q4

REPORT INFORMATION
  Report Type: Spontaneous
  Country: US (occurrence: US)
  Receive Date: 20201009
  Receipt Date: 20201009
  Transmission Date: 20210114
  Serious: No
  Sender: FDA-Public Use
  Company Number: US-ROMARKLABS-2020-US-000198

PATIENT
  Age: 48 Year
  Sex: Male

DRUGS (1)
  1. ALINIA [Suspect]
     Active Substance: NITAZOXANIDE
     Indication: PRODUCT USED FOR UNKNOWN INDICATION
     Dosage: TAKE 2 TABLETS BY MOUTH TWICE DAILY FOR 20 DAYS
     Route: 048
     Dates: start: 20200717

REACTIONS (1)
  - Diarrhoea [Unknown]

NARRATIVE: CASE EVENT DATE: 20200717
